FAERS Safety Report 20067859 (Version 1)
Quarter: 2021Q4

REPORT INFORMATION
  Report Type: Report from Study
  Country: CA (occurrence: CA)
  Receive Date: 20211115
  Receipt Date: 20211115
  Transmission Date: 20220303
  Serious: Yes (Other)
  Sender: FDA-Public Use
  Company Number: CA-TAKEDA-2020TUS016241

PATIENT
  Age: 29 Year
  Sex: Female

DRUGS (4)
  1. VEDOLIZUMAB [Suspect]
     Active Substance: VEDOLIZUMAB
     Indication: Colitis ulcerative
     Dosage: 300 MILLIGRAM
     Route: 042
     Dates: start: 20200313
  2. VEDOLIZUMAB [Suspect]
     Active Substance: VEDOLIZUMAB
     Dosage: 300 MILLIGRAM, Q4WEEKS
     Route: 042
     Dates: start: 20211014
  3. PREDNISONE [Concomitant]
     Active Substance: PREDNISONE
     Dosage: UNK
  4. MESALAMINE [Concomitant]
     Active Substance: MESALAMINE
     Dosage: UNK

REACTIONS (9)
  - Colitis ulcerative [Unknown]
  - Frequent bowel movements [Unknown]
  - Diarrhoea [Unknown]
  - Muscle spasms [Unknown]
  - Pyrexia [Unknown]
  - Headache [Unknown]
  - Cough [Unknown]
  - Therapeutic reaction time decreased [Unknown]
  - Off label use [Unknown]

NARRATIVE: CASE EVENT DATE: 20211014
